FAERS Safety Report 9055088 (Version 2)
Quarter: 2013Q2

REPORT INFORMATION
  Report Type: Spontaneous
  Country: US (occurrence: US)
  Receive Date: 20130206
  Receipt Date: 20130506
  Transmission Date: 20140414
  Serious: No
  Sender: FDA-Public Use
  Company Number: US-009507513-1301USA014495

PATIENT
  Age: 22 Year
  Sex: Female
  Weight: 67.12 kg

DRUGS (1)
  1. IMPLANON [Suspect]
     Indication: CONTRACEPTION
     Dosage: UNK
     Route: 059
     Dates: start: 20120518, end: 20130207

REACTIONS (2)
  - Postpartum depression [Recovered/Resolved]
  - Fatigue [Recovered/Resolved]
